FAERS Safety Report 6173367-4 (Version None)
Quarter: 2009Q2

REPORT INFORMATION
  Report Type: 
  Country: None (occurrence: None)
  Receive Date: 20090424
  Receipt Date: 20090120
  Transmission Date: 20091009
  Serious: Yes (Other)
  Sender: FDA-Public Use
  Company Number: SPV1-2008-02624

PATIENT
  Age: 9 Year
  Sex: Male
  Weight: 48.5 kg

DRUGS (3)
  1. VYVANSE [Suspect]
     Indication: ATTENTION DEFICIT/HYPERACTIVITY DISORDER
     Dosage: 30 MG, 1X/DAY:QD, ORAL; 30 MG, ORAL; 20 MG, ORAL
     Route: 048
     Dates: start: 20081114, end: 20081124
  2. VYVANSE [Suspect]
     Indication: ATTENTION DEFICIT/HYPERACTIVITY DISORDER
     Dosage: 30 MG, 1X/DAY:QD, ORAL; 30 MG, ORAL; 20 MG, ORAL
     Route: 048
     Dates: start: 20081114, end: 20081214
  3. VYVANSE [Suspect]
     Indication: ATTENTION DEFICIT/HYPERACTIVITY DISORDER
     Dosage: 30 MG, 1X/DAY:QD, ORAL; 30 MG, ORAL; 20 MG, ORAL
     Route: 048
     Dates: start: 20081125, end: 20081225

REACTIONS (3)
  - DYSPNOEA [None]
  - EDUCATIONAL PROBLEM [None]
  - LOGORRHOEA [None]
